FAERS Safety Report 17247411 (Version 2)
Quarter: 2020Q1

REPORT INFORMATION
  Report Type: Spontaneous
  Country: SE (occurrence: SE)
  Receive Date: 20200108
  Receipt Date: 20200207
  Transmission Date: 20200409
  Serious: Yes (Other)
  Sender: FDA-Public Use
  Company Number: SE-MYLANLABS-2020M1001583

PATIENT
  Age: 30 Year
  Sex: Female

DRUGS (3)
  1. GESTRINA [Concomitant]
     Dosage: 75 MICROGRAM, QD
  2. FLUOXETINE [Suspect]
     Active Substance: FLUOXETINE HYDROCHLORIDE
     Indication: DEPRESSED MOOD
     Dosage: UNK
     Dates: start: 20190701, end: 20190912
  3. LERGIGAN (PROMETHAZINE HYDROCHLORIDE) [Suspect]
     Active Substance: PROMETHAZINE HYDROCHLORIDE
     Indication: ANXIETY
     Dosage: UNK
     Dates: start: 20190701, end: 20190912

REACTIONS (5)
  - Tic [Unknown]
  - Increased tendency to bruise [Unknown]
  - Tremor [Unknown]
  - Condition aggravated [Unknown]
  - Compulsions [Unknown]

NARRATIVE: CASE EVENT DATE: 2019
